FAERS Safety Report 7338421-X (Version None)
Quarter: 2011Q1

REPORT INFORMATION
  Report Type: 
  Country: None (occurrence: None)
  Receive Date: 20110308
  Receipt Date: 20110226
  Transmission Date: 20110831
  Serious: Yes (Other)
  Sender: FDA-Public Use
  Company Number: CA-JNJFOC-20110301029

PATIENT
  Sex: Male
  Weight: 104.5 kg

DRUGS (4)
  1. REMICADE [Suspect]
     Indication: CROHN'S DISEASE
     Dosage: DOSE: 500
     Route: 042
  2. ZANTAC [Concomitant]
  3. REMICADE [Suspect]
     Dosage: DOSE: 500
     Route: 042
  4. CHOLESTYRAMINE [Concomitant]

REACTIONS (1)
  - ABDOMINAL HERNIA [None]
